FAERS Safety Report 5145826-4 (Version None)
Quarter: 2006Q4

REPORT INFORMATION
  Report Type: 
  Country: None (occurrence: None)
  Receive Date: 20061108
  Receipt Date: 20061031
  Transmission Date: 20070319
  Serious: Yes (Death, Hospitalization)
  Sender: FDA-Public Use
  Company Number: US-JNJFOC-20061100088

PATIENT
  Sex: Male
  Weight: 61.69 kg

DRUGS (10)
  1. RAZADYNE ER [Suspect]
     Indication: DEMENTIA
     Route: 048
  2. ZOCOR [Concomitant]
  3. ASPIRIN [Concomitant]
  4. ZYRTEC [Concomitant]
  5. PLAVIX [Concomitant]
  6. TOPROL-XL [Concomitant]
  7. ALTACE [Concomitant]
  8. PEPCID [Concomitant]
  9. MICARDIS [Concomitant]
  10. FOLTEX [Concomitant]

REACTIONS (3)
  - CORONARY ARTERIAL STENT INSERTION [None]
  - DEATH [None]
  - PNEUMONIA [None]
